FAERS Safety Report 5610559-4 (Version None)
Quarter: 2008Q1

REPORT INFORMATION
  Report Type: 
  Country: None (occurrence: None)
  Receive Date: 20080201
  Receipt Date: 20070807
  Transmission Date: 20080703
  Serious: Yes (Death)
  Sender: FDA-Public Use
  Company Number: CA-JNJFOC-20080107718

PATIENT
  Age: 28 Year
  Sex: Male

DRUGS (1)
  1. FENTANYL [Suspect]
     Indication: ARTHRALGIA
     Route: 062

REACTIONS (1)
  - DEATH [None]
